FAERS Safety Report 6100452-5 (Version None)
Quarter: 2009Q1

REPORT INFORMATION
  Report Type: 
  Country: None (occurrence: None)
  Receive Date: 20090226
  Receipt Date: 20090210
  Transmission Date: 20090719
  Serious: Yes (Death)
  Sender: FDA-Public Use
  Company Number: 2009PL000047

PATIENT
  Sex: Female

DRUGS (1)
  1. LOTRONEX [Suspect]

REACTIONS (1)
  - DEATH [None]
